FAERS Safety Report 4279001-2 (Version None)
Quarter: 2004Q1

REPORT INFORMATION
  Report Type: 
  Country: None (occurrence: None)
  Receive Date: 20040121
  Receipt Date: 20040112
  Transmission Date: 20041129
  Serious: Yes (Hospitalization, Other)
  Sender: FDA-Public Use
  Company Number: USA031254080

PATIENT
  Age: 66 Year
  Sex: Male
  Weight: 70 kg

DRUGS (9)
  1. FORTEO [Suspect]
     Indication: OSTEOPOROSIS
     Dosage: 20 UG/DAY
     Dates: start: 20030718
  2. FOSAMAX [Concomitant]
  3. LORAZEPAM [Concomitant]
  4. ELAVIL [Concomitant]
  5. OXYCONTIN [Concomitant]
  6. CALCIUM [Concomitant]
  7. MULTIVITAMIN [Concomitant]
  8. ASPIRIN [Concomitant]
  9. GLUCOSAMINE CHONDROITIN [Concomitant]

REACTIONS (7)
  - BACK PAIN [None]
  - DIFFICULTY IN WALKING [None]
  - HYPOAESTHESIA [None]
  - INTERVERTEBRAL DISC OPERATION [None]
  - MEDICATION ERROR [None]
  - MONOPLEGIA [None]
  - POST PROCEDURAL COMPLICATION [None]
